FAERS Safety Report 7712349-5 (Version None)
Quarter: 2011Q3

REPORT INFORMATION
  Report Type: 
  Country: None (occurrence: None)
  Receive Date: 20110826
  Receipt Date: 20110818
  Transmission Date: 20111222
  Serious: Yes (Life-Threatening, Other)
  Sender: FDA-Public Use
  Company Number: JP-ROCHE-786009

PATIENT
  Sex: Male
  Weight: 65 kg

DRUGS (4)
  1. AVASTIN [Suspect]
     Indication: COLON CANCER RECURRENT
     Dosage: ROUTE: INTRAVENOUS DRIP
     Route: 042
     Dates: start: 20110510, end: 20110531
  2. XELODA [Suspect]
     Dosage: DRUG:XELODA 300. IT IS ONE ADMINISTERING WEEKLY HOLIDAY MEDICINE FOR TWO WEEKS.
     Route: 048
     Dates: start: 20110531, end: 20110610
  3. OXALIPLATIN [Concomitant]
     Dosage: ROUTE: INTRAVENOUS DRIP.
     Route: 042
     Dates: start: 20110510, end: 20110531
  4. XELODA [Suspect]
     Indication: LARGE INTESTINE CARCINOMA
     Dosage: DRUG:XELODA 300. IT IS ONE ADMINISTERING WEEKLY HOLIDAY MEDICINE FOR TWO WEEKS.
     Route: 048
     Dates: start: 20110510, end: 20110524

REACTIONS (8)
  - DISSEMINATED INTRAVASCULAR COAGULATION [None]
  - COLITIS [None]
  - MELAENA [None]
  - ACUTE RESPIRATORY FAILURE [None]
  - PYREXIA [None]
  - SEPSIS [None]
  - LARGE INTESTINAL ULCER [None]
  - DECREASED APPETITE [None]
